FAERS Safety Report 24192601 (Version 1)
Quarter: 2024Q3

REPORT INFORMATION
  Report Type: Spontaneous
  Country: US (occurrence: US)
  Receive Date: 20240809
  Receipt Date: 20240809
  Transmission Date: 20241017
  Serious: No
  Sender: BRISTOL MYERS SQUIBB
  Company Number: US-BRISTOL-MYERS SQUIBB COMPANY-2024-125803

PATIENT
  Age: 51 Year
  Sex: Female

DRUGS (1)
  1. AUGTYRO [Suspect]
     Active Substance: REPOTRECTINIB
     Indication: Non-small cell lung cancer
     Route: 048
     Dates: start: 2024

REACTIONS (5)
  - Nausea [Unknown]
  - Paraesthesia [Unknown]
  - Sensitive skin [Unknown]
  - Dysphagia [Unknown]
  - Hypoaesthesia oral [Unknown]
